FAERS Safety Report 10202906 (Version 1)
Quarter: 2014Q2

REPORT INFORMATION
  Report Type: Spontaneous
  Country: US (occurrence: US)
  Receive Date: 20140522
  Receipt Date: 20140522
  Transmission Date: 20141212
  Serious: No
  Sender: FDA-Public Use
  Company Number: US-SA-2014SA043463

PATIENT
  Age: 62 Year
  Sex: Female

DRUGS (1)
  1. LANTUS [Suspect]
     Indication: TYPE 1 DIABETES MELLITUS
     Dosage: DOSE:80 UNIT(S)
     Route: 058
     Dates: start: 20110203

REACTIONS (2)
  - Eye disorder [Unknown]
  - Off label use [Unknown]
